FAERS Safety Report 9489397 (Version 2)
Quarter: 2015Q2

REPORT INFORMATION
  Report Type: Spontaneous
  Country: PH (occurrence: PH)
  Receive Date: 20130829
  Receipt Date: 20150430
  Transmission Date: 20150821
  Serious: Yes (Other)
  Sender: FDA-Public Use
  Company Number: PHHY2013PH092146

PATIENT
  Age: 35 Year
  Sex: Male

DRUGS (4)
  1. DEXAMETHASONE. [Suspect]
     Active Substance: DEXAMETHASONE
     Indication: GOUT
     Dosage: 8 MG, PER DAY
     Route: 065
  2. COLCHICINE. [Concomitant]
     Active Substance: COLCHICINE
     Indication: GOUT
     Dosage: 1.5 MG, QD
     Route: 065
  3. ALLOPURINOL. [Concomitant]
     Active Substance: ALLOPURINOL
     Indication: GOUT
     Dosage: 300 MG, QD
     Route: 065
  4. PREDNISONE. [Concomitant]
     Active Substance: PREDNISONE
     Indication: PRODUCT USED FOR UNKNOWN INDICATION
     Dosage: 20 MG, QD
     Route: 065

REACTIONS (10)
  - Hyperuricaemia [Unknown]
  - Diabetes mellitus [Unknown]
  - Cushingoid [Unknown]
  - Lenticular opacities [Unknown]
  - Cushing^s syndrome [Unknown]
  - Acne [Unknown]
  - Central obesity [Unknown]
  - Hypercholesterolaemia [Unknown]
  - Skin striae [Unknown]
  - Lipohypertrophy [Unknown]
